FAERS Safety Report 7755693-8 (Version None)
Quarter: 2011Q3

REPORT INFORMATION
  Report Type: 
  Country: None (occurrence: None)
  Receive Date: 20110916
  Receipt Date: 20110906
  Transmission Date: 20111222
  Serious: Yes (Other)
  Sender: FDA-Public Use
  Company Number: JP-JNJFOC-20110905415

PATIENT

DRUGS (4)
  1. DIAZEPAM [Concomitant]
     Route: 065
  2. LANSOPRAZOLE [Concomitant]
     Route: 065
  3. FENTANYL CITRATE [Suspect]
     Indication: CANCER PAIN
     Route: 062
  4. LEVOTHYROXINE SODIUM [Concomitant]
     Route: 065

REACTIONS (1)
  - AGGRESSION [None]
